FAERS Safety Report 5752476-5 (Version None)
Quarter: 2008Q2

REPORT INFORMATION
  Report Type: 
  Country: None (occurrence: None)
  Receive Date: 20080527
  Receipt Date: 20080527
  Transmission Date: 20081010
  Serious: Yes (Death)
  Sender: FDA-Public Use
  Company Number: None

PATIENT
  Sex: Female
  Weight: 67.586 kg

DRUGS (7)
  1. SANDOSTATIN LAR [Suspect]
     Indication: ACROMEGALY
     Dosage: 30MG EVERY 28 DAYS INTRAMUSCULAR
     Route: 030
     Dates: start: 20030501, end: 20080403
  2. METFORMIN HCL [Concomitant]
  3. ATENOLOL [Concomitant]
  4. SPIRONOLACTONE [Concomitant]
  5. REMERON [Concomitant]
  6. LEVOXYL [Concomitant]
  7. RISPERDAL [Concomitant]

REACTIONS (1)
  - DEATH [None]
